FAERS Safety Report 4549628-9 (Version None)
Quarter: 2005Q1

REPORT INFORMATION
  Report Type: 
  Country: None (occurrence: None)
  Receive Date: 20050111
  Receipt Date: 20040727
  Transmission Date: 20050727
  Serious: Yes (Life-Threatening, Other)
  Sender: FDA-Public Use
  Company Number: US012745

PATIENT
  Age: 29 Year
  Sex: Female
  Weight: 108.2 kg

DRUGS (8)
  1. LAMICTAL [Suspect]
     Indication: BIPOLAR DISORDER
     Route: 048
     Dates: start: 20040106
  2. GABITRIL [Suspect]
     Indication: BIPOLAR DISORDER
     Dosage: 4MG TWICE PER DAY
     Route: 048
     Dates: start: 20040126, end: 20040209
  3. CELEXA [Suspect]
     Indication: DEPRESSION
     Route: 065
  4. NEURONTIN [Suspect]
     Indication: BIPOLAR DISORDER
     Dosage: 300MG VARIABLE DOSE
     Route: 048
     Dates: start: 20011030
  5. XANAX [Suspect]
     Indication: ANXIETY
     Dosage: .5MG AS REQUIRED
     Route: 048
     Dates: start: 20030908
  6. KLONOPIN [Suspect]
     Indication: ANXIETY
     Dosage: .5MG TWICE PER DAY
     Route: 048
  7. ALCOHOL [Concomitant]
  8. COCAINE [Concomitant]

REACTIONS (9)
  - DIPLOPIA [None]
  - DIZZINESS [None]
  - DRUG INTERACTION [None]
  - DYSTONIA [None]
  - HALLUCINATION [None]
  - HYPOGLYCAEMIA [None]
  - OEDEMA PERIPHERAL [None]
  - VISION BLURRED [None]
  - VISUAL ACUITY REDUCED [None]
